FAERS Safety Report 15978862 (Version 2)
Quarter: 2019Q1

REPORT INFORMATION
  Report Type: Report from Study
  Country: US (occurrence: US)
  Receive Date: 20190219
  Receipt Date: 20190313
  Transmission Date: 20190418
  Serious: Yes (Other)
  Sender: FDA-Public Use
  Company Number: US-ALEXION PHARMACEUTICALS INC.-A201902290

PATIENT
  Sex: Male

DRUGS (2)
  1. SOLIRIS [Suspect]
     Active Substance: ECULIZUMAB
     Indication: ATYPICAL HAEMOLYTIC URAEMIC SYNDROME
     Dosage: 900 MG, QW
     Route: 042
     Dates: start: 20190211
  2. SOLIRIS [Suspect]
     Active Substance: ECULIZUMAB
     Dosage: 900 MG, QW
     Route: 042
     Dates: start: 20190211

REACTIONS (7)
  - Fluid overload [Unknown]
  - Hypertension [Unknown]
  - Endotracheal intubation [Unknown]
  - Vascular access placement [Unknown]
  - Oliguria [Unknown]
  - Respiratory tract oedema [Unknown]
  - Azotaemia [Unknown]

NARRATIVE: CASE EVENT DATE: 20190211
